FAERS Safety Report 24062027 (Version 1)
Quarter: 2024Q3

REPORT INFORMATION
  Report Type: Spontaneous
  Country: US (occurrence: None)
  Receive Date: 20240707
  Receipt Date: 20240707
  Transmission Date: 20241016
  Serious: Yes (Hospitalization, Other)
  Sender: Public
  Company Number: None

PATIENT
  Age: 29 Year
  Sex: Female
  Weight: 81 kg

DRUGS (1)
  1. ZEPBOUND [Suspect]
     Active Substance: TIRZEPATIDE
     Indication: Weight decreased
     Dates: start: 20240607, end: 20240621

REACTIONS (4)
  - Panic attack [None]
  - Anxiety [None]
  - Palpitations [None]
  - Loss of consciousness [None]

NARRATIVE: CASE EVENT DATE: 20240702
